FAERS Safety Report 6089473-9 (Version None)
Quarter: 2009Q1

REPORT INFORMATION
  Report Type: 
  Country: None (occurrence: None)
  Receive Date: 20090219
  Receipt Date: 20090219
  Transmission Date: 20090719
  Serious: No
  Sender: FDA-Public Use
  Company Number: None

PATIENT
  Sex: Female
  Weight: 81.36 kg

DRUGS (5)
  1. LOVASTATIN [Suspect]
     Dosage: 20MG TABLET 20 MG QHS ORAL
     Route: 048
     Dates: start: 20090116, end: 20090218
  2. AVAPRO [Concomitant]
  3. COZAAR [Concomitant]
  4. LASIX [Concomitant]
  5. MAXZIDE [Concomitant]

REACTIONS (1)
  - MYALGIA [None]
